FAERS Safety Report 17229652 (Version 2)
Quarter: 2020Q1

REPORT INFORMATION
  Report Type: Spontaneous
  Country: US (occurrence: US)
  Receive Date: 20200103
  Receipt Date: 20200115
  Transmission Date: 20200409
  Serious: Yes (Other)
  Sender: FDA-Public Use
  Company Number: US-ASTRAZENECA-2019SF76569

PATIENT
  Age: 29 Year
  Sex: Female
  Weight: 209 kg

DRUGS (3)
  1. BENARDRYL [Concomitant]
  2. FASENRA [Suspect]
     Active Substance: BENRALIZUMAB
     Indication: ASTHMA
     Route: 058
     Dates: start: 20191202, end: 20191203
  3. PREDNISONE. [Concomitant]
     Active Substance: PREDNISONE

REACTIONS (8)
  - Swelling face [Recovered/Resolved]
  - Throat tightness [Recovered/Resolved]
  - Dyspnoea [Unknown]
  - Swollen tongue [Unknown]
  - Rash [Recovered/Resolved]
  - Pharyngeal swelling [Unknown]
  - Bronchospasm [Unknown]
  - Pruritus [Recovered/Resolved]

NARRATIVE: CASE EVENT DATE: 20191202
